FAERS Safety Report 5345717-X (Version None)
Quarter: 2007Q2

REPORT INFORMATION
  Report Type: 
  Country: None (occurrence: None)
  Receive Date: 20070605
  Receipt Date: 20070601
  Transmission Date: 20071010
  Serious: Yes (Death, Life-Threatening)
  Sender: FDA-Public Use
  Company Number: JP-AVENTIS-200711019JP

PATIENT
  Age: 69 Year
  Sex: Male
  Weight: 97 kg

DRUGS (8)
  1. TAXOTERE [Suspect]
     Indication: PROSTATE CANCER
     Route: 041
     Dates: start: 20070406, end: 20070406
  2. ZOMETA [Concomitant]
     Indication: BONE PAIN
     Route: 042
     Dates: start: 20070402, end: 20070402
  3. DECADRON [Concomitant]
     Indication: PROSTATIC SPECIFIC ANTIGEN INCREASED
     Dates: start: 20060712, end: 20070409
  4. DECADRON [Concomitant]
     Route: 042
     Dates: start: 20070406, end: 20070406
  5. DECADRON [Concomitant]
     Indication: OEDEMA
     Dates: start: 20060712, end: 20070409
  6. DECADRON [Concomitant]
     Indication: PROPHYLAXIS
     Dates: start: 20060712, end: 20070409
  7. DECADRON [Concomitant]
     Route: 042
     Dates: start: 20070406, end: 20070406
  8. SEROTONE [Concomitant]
     Indication: PROPHYLAXIS OF NAUSEA AND VOMITING
     Route: 042
     Dates: start: 20070406, end: 20070406

REACTIONS (7)
  - ATRIAL FIBRILLATION [None]
  - BLOOD PRESSURE DECREASED [None]
  - CARDIAC ARREST [None]
  - CARDIAC FAILURE CONGESTIVE [None]
  - DISSEMINATED INTRAVASCULAR COAGULATION [None]
  - RENAL FAILURE ACUTE [None]
  - TACHYCARDIA [None]
